FAERS Safety Report 19245062 (Version 2)
Quarter: 2021Q2

REPORT INFORMATION
  Report Type: Report from Study
  Country: US (occurrence: US)
  Receive Date: 20210511
  Receipt Date: 20210518
  Transmission Date: 20210717
  Serious: No
  Sender: FDA-Public Use
  Company Number: US-GE HEALTHCARE LIFE SCIENCES-2021CSU000770

PATIENT

DRUGS (2)
  1. VIZAMYL [Suspect]
     Active Substance: FLUTEMETAMOL F-18
     Indication: PRODUCT USED FOR UNKNOWN INDICATION
  2. VIZAMYL [Suspect]
     Active Substance: FLUTEMETAMOL F-18
     Indication: POSITRON EMISSION TOMOGRAM
     Dosage: UNK UNK, SINGLE
     Route: 065

REACTIONS (1)
  - Blood creatinine increased [Not Recovered/Not Resolved]

NARRATIVE: CASE EVENT DATE: 20200610
